FAERS Safety Report 5230062-3 (Version None)
Quarter: 2007Q1

REPORT INFORMATION
  Report Type: 
  Country: None (occurrence: None)
  Receive Date: 20070201
  Receipt Date: 20070122
  Transmission Date: 20070707
  Serious: Yes (Hospitalization)
  Sender: FDA-Public Use
  Company Number: 2006-06314

PATIENT
  Age: 36 Year
  Sex: Female

DRUGS (1)
  1. TRELSTAR DEPOT (WITH CLIP 'N' JECT) (WATSON LABORATORIES) (TRIPTORELIN [Suspect]
     Indication: INFERTILITY
     Dosage: .05 MG, DAILY, SUBCUTANEOUS
     Route: 058
     Dates: start: 20061004

REACTIONS (9)
  - ASTHENIA [None]
  - BLOOD PH INCREASED [None]
  - HAEMOLYTIC ANAEMIA [None]
  - OVARIAN ENLARGEMENT [None]
  - OVARIAN HYPERSTIMULATION SYNDROME [None]
  - RENAL FAILURE ACUTE [None]
  - THROMBOCYTOPENIA [None]
  - THROMBOTIC MICROANGIOPATHY [None]
  - VOMITING [None]
